FAERS Safety Report 9369531 (Version 1)
Quarter: 2013Q2

REPORT INFORMATION
  Report Type: Report from Study
  Country: BR (occurrence: BR)
  Receive Date: 20130626
  Receipt Date: 20130626
  Transmission Date: 20140414
  Serious: Yes (Other)
  Sender: FDA-Public Use
  Company Number: BR-ROCHE-1239895

PATIENT
  Sex: Female
  Weight: 54 kg

DRUGS (19)
  1. XOLAIR [Suspect]
     Indication: ASTHMA
     Dosage: 28 TO 28 DAYS
     Route: 065
     Dates: start: 20110613
  2. XOLAIR [Suspect]
     Route: 065
     Dates: start: 20130618
  3. AEROLIN [Concomitant]
  4. DIGESAN [Concomitant]
     Route: 065
     Dates: start: 2007
  5. BUDESONIDE [Concomitant]
     Route: 065
     Dates: start: 2007
  6. BAMIFIX [Concomitant]
     Route: 065
     Dates: start: 2006
  7. OMEPRAZOLE [Concomitant]
     Route: 065
     Dates: start: 2007
  8. INSULIN REGULAR [Concomitant]
     Route: 065
     Dates: start: 2012
  9. PREDNISONE [Concomitant]
     Route: 065
     Dates: start: 2006
  10. APRESOLINA [Concomitant]
     Route: 065
     Dates: start: 2011
  11. RANITIDINE [Concomitant]
     Route: 065
     Dates: start: 2012
  12. NORVASC [Concomitant]
     Route: 065
     Dates: start: 2006
  13. ENALAPRIL [Concomitant]
     Route: 065
     Dates: start: 2007
  14. LASIX [Concomitant]
     Route: 065
     Dates: start: 2007
  15. METFORMIN [Concomitant]
     Route: 065
     Dates: start: 2007
  16. GLIBENCLAMIDE [Concomitant]
     Route: 065
     Dates: start: 2011
  17. RIVOTRIL [Concomitant]
     Route: 065
     Dates: start: 2007
  18. LUMIGAN [Concomitant]
     Route: 065
     Dates: start: 2007
  19. FLUOXETINE [Concomitant]
     Route: 065
     Dates: start: 2006

REACTIONS (14)
  - Diabetes mellitus [Recovering/Resolving]
  - Cataract [Recovering/Resolving]
  - Hypertension [Recovering/Resolving]
  - Erysipelas [Unknown]
  - Dyspnoea [Unknown]
  - Oesophagitis [Unknown]
  - Insomnia [Unknown]
  - Abdominal pain upper [Unknown]
  - Gait disturbance [Recovering/Resolving]
  - Asthma [Recovering/Resolving]
  - Fatigue [Recovering/Resolving]
  - Wound [Recovering/Resolving]
  - Diabetic foot [Unknown]
  - Apnoea [Unknown]
